FAERS Safety Report 11740203 (Version 3)
Quarter: 2015Q4

REPORT INFORMATION
  Report Type: Spontaneous
  Country: FR (occurrence: FR)
  Receive Date: 20151113
  Receipt Date: 20151211
  Transmission Date: 20160304
  Serious: Yes (Life-Threatening, Hospitalization, Other)
  Sender: FDA-Public Use
  Company Number: FR-PFIZER INC-2015373837

PATIENT
  Age: 57 Year
  Sex: Female
  Weight: 89 kg

DRUGS (8)
  1. EUPHYLLINE /00003701/ [Concomitant]
     Active Substance: AMINOPHYLLINE
     Indication: HYPERSENSITIVITY
     Dosage: UNK
     Route: 048
  2. ESOMEPRAZOLE [Concomitant]
     Active Substance: ESOMEPRAZOLE
     Indication: ABDOMINAL PAIN UPPER
     Dosage: UNK
     Route: 048
  3. SALAZOPYRINE [Suspect]
     Active Substance: SULFASALAZINE
     Indication: RHEUMATOID ARTHRITIS
     Dosage: 1 TABLET, DAILY IN THE MORNING
     Dates: start: 20150615
  4. PROPRANOLOL [Concomitant]
     Active Substance: PROPRANOLOL\PROPRANOLOL HYDROCHLORIDE
     Indication: MIGRAINE
     Dosage: UNK
     Route: 048
  5. CETIRIZINE [Concomitant]
     Active Substance: CETIRIZINE HYDROCHLORIDE
     Indication: HYPERSENSITIVITY
     Dosage: UNK
     Route: 048
  6. SALAZOPYRINE [Suspect]
     Active Substance: SULFASALAZINE
     Dosage: 1 DF, 2X/DAY (1 TAB IN THE MORNING AND 1 TAB IN THE EVENING)
  7. SALAZOPYRINE [Suspect]
     Active Substance: SULFASALAZINE
     Dosage: 2 DF, 2X/DAY (2 TABS IN THE MORNING AND 2 TABS IN THE EVENING)
  8. PREDNISOLONE. [Concomitant]
     Active Substance: PREDNISOLONE
     Indication: RHEUMATOID ARTHRITIS
     Dosage: 10 MG, 1X/DAY
     Route: 048
     Dates: start: 20141221

REACTIONS (19)
  - Dehydration [Unknown]
  - Hypokalaemia [Recovered/Resolved]
  - General physical health deterioration [Recovering/Resolving]
  - Hyperglycaemia [Unknown]
  - Agranulocytosis [Recovered/Resolved]
  - Pyrexia [Unknown]
  - Hyponatraemia [Unknown]
  - Pulmonary embolism [Unknown]
  - Diarrhoea [Recovered/Resolved]
  - Decreased appetite [Recovered/Resolved]
  - Pneumonia [Recovered/Resolved]
  - Hypoalbuminaemia [Unknown]
  - Acute kidney injury [Recovered/Resolved]
  - Asthenia [Unknown]
  - Nausea [Recovered/Resolved]
  - Malnutrition [Unknown]
  - Dysphagia [Unknown]
  - Decreased appetite [Recovered/Resolved]
  - Fall [Unknown]

NARRATIVE: CASE EVENT DATE: 2015
